FAERS Safety Report 7926916-7 (Version None)
Quarter: 2011Q4

REPORT INFORMATION
  Report Type: 
  Country: None (occurrence: None)
  Receive Date: 20111118
  Receipt Date: 20111107
  Transmission Date: 20120403
  Serious: Yes (Hospitalization, Other)
  Sender: FDA-Public Use
  Company Number: US-ELI_LILLY_AND_COMPANY-US201111002321

PATIENT
  Age: 68 Year
  Sex: Male

DRUGS (8)
  1. METFORMIN HCL [Concomitant]
  2. HUMULIN R [Suspect]
     Dosage: UNK, PRN
     Dates: start: 19810101
  3. HUMULIN 70/30 [Suspect]
     Indication: DIABETES MELLITUS
     Dosage: 32 U, EACH MORNING
     Dates: start: 19810101
  4. HUMULIN 70/30 [Suspect]
     Dosage: 12 U, EACH EVENING
     Dates: start: 19810101
  5. HUMULIN R [Suspect]
     Dosage: UNK, PRN
     Dates: start: 19810101
  6. HUMULIN 70/30 [Suspect]
     Dosage: 32 U, EACH MORNING
     Dates: start: 19810101
  7. HUMULIN 70/30 [Suspect]
     Dosage: 12 U, EACH EVENING
     Dates: start: 19810101
  8. HUMULIN R [Suspect]
     Indication: DIABETES MELLITUS
     Dosage: UNK, PRN
     Dates: start: 19810101

REACTIONS (5)
  - DIARRHOEA [None]
  - DRUG INEFFECTIVE [None]
  - BLINDNESS TRANSIENT [None]
  - TOXICITY TO VARIOUS AGENTS [None]
  - BLOOD GLUCOSE INCREASED [None]
